FAERS Safety Report 6433589-1 (Version None)
Quarter: 2009Q4

REPORT INFORMATION
  Report Type: 
  Country: None (occurrence: None)
  Receive Date: 20091110
  Receipt Date: 20091103
  Transmission Date: 20100525
  Serious: Yes (Hospitalization, Disabling)
  Sender: FDA-Public Use
  Company Number: BR-BAYER-200918157LA

PATIENT
  Age: 38 Year
  Sex: Male

DRUGS (4)
  1. BETAFERON [Suspect]
     Indication: PRIMARY PROGRESSIVE MULTIPLE SCLEROSIS
     Dosage: BETAJECT
     Route: 058
     Dates: start: 20090501, end: 20090601
  2. BETAFERON [Suspect]
     Dosage: BETAJECT
     Route: 058
     Dates: start: 20090101
  3. IBUPROFEN [Concomitant]
     Indication: PREMEDICATION
     Dosage: 2 TAB 1 HOUR BEFORE BETAFERON INJECTIONS
     Route: 048
     Dates: start: 20090101
  4. DIPIRONA [Concomitant]
     Indication: HEADACHE
     Dosage: WHEN HAVE THE SYMPTOMS
     Route: 048
     Dates: start: 19960101

REACTIONS (11)
  - ABASIA [None]
  - BONE PAIN [None]
  - DYSGRAPHIA [None]
  - GAIT DISTURBANCE [None]
  - HEMIPLEGIA [None]
  - INJECTION SITE PARAESTHESIA [None]
  - INTERVERTEBRAL DISC PROTRUSION [None]
  - MOBILITY DECREASED [None]
  - NEURITIS [None]
  - SCIATIC NERVE NEUROPATHY [None]
  - SCIATICA [None]
